FAERS Safety Report 7852400-5 (Version None)
Quarter: 2011Q4

REPORT INFORMATION
  Report Type: 
  Country: None (occurrence: None)
  Receive Date: 20111026
  Receipt Date: 20111017
  Transmission Date: 20120403
  Serious: Yes (Other)
  Sender: FDA-Public Use
  Company Number: US-ASTRAZENECA-2011SE40758

PATIENT
  Age: 50 Year
  Sex: Female
  Weight: 75.3 kg

DRUGS (17)
  1. SEROQUEL [Suspect]
     Indication: SLEEP DISORDER
     Route: 048
     Dates: start: 20080501
  2. SEROQUEL [Suspect]
     Route: 048
     Dates: start: 20090101
  3. SEROQUEL [Suspect]
     Route: 048
     Dates: start: 20090101
  4. SEROQUEL [Suspect]
     Indication: BIPOLAR DISORDER
     Route: 048
     Dates: start: 20080501
  5. SEROQUEL [Suspect]
     Route: 048
     Dates: start: 20090101
  6. THYROID MEDICATION [Concomitant]
     Indication: THYROID DISORDER
     Dosage: DAILY
     Route: 048
  7. SEROQUEL [Suspect]
     Route: 048
     Dates: start: 20090114, end: 20110214
  8. SEROQUEL [Suspect]
     Route: 048
     Dates: start: 20110215, end: 20110708
  9. HYDROCODONE BITARTRATE [Concomitant]
     Indication: PAIN
     Dosage: AS NEEDED
     Route: 048
     Dates: start: 20110701
  10. LAMICTAL [Concomitant]
     Indication: AFFECTIVE DISORDER
     Route: 048
     Dates: start: 20080521
  11. SEROQUEL [Suspect]
     Indication: AFFECTIVE DISORDER
     Route: 048
     Dates: start: 20080501
  12. SEROQUEL [Suspect]
     Route: 048
     Dates: start: 20090114, end: 20110214
  13. SEROQUEL [Suspect]
     Route: 048
     Dates: start: 20090114, end: 20110214
  14. SEROQUEL [Suspect]
     Route: 048
     Dates: start: 20110215, end: 20110708
  15. SEROQUEL [Suspect]
     Route: 048
     Dates: start: 20110215, end: 20110708
  16. REQUIP [Concomitant]
     Indication: MENTAL DISORDER
     Dosage: AS NEEDED
     Route: 048
  17. KLONOPIN [Concomitant]
     Indication: CONVULSION
     Route: 048
     Dates: start: 20101122

REACTIONS (6)
  - OFF LABEL USE [None]
  - MUSCLE TWITCHING [None]
  - DRUG DOSE OMISSION [None]
  - BREAST CANCER [None]
  - DYSKINESIA [None]
  - INSOMNIA [None]
